FAERS Safety Report 9057890 (Version 1)
Quarter: 2013Q1

REPORT INFORMATION
  Report Type: Spontaneous
  Country: US (occurrence: None)
  Receive Date: 20130204
  Receipt Date: 20130204
  Transmission Date: 20140127
  Serious: No
  Sender: FDA-Public Use
  Company Number: None

PATIENT
  Age: 50 Year
  Sex: Female
  Weight: 105.24 kg

DRUGS (1)
  1. TAMIFLU [Suspect]
     Indication: INFLUENZA

REACTIONS (4)
  - Amnesia [None]
  - Irritability [None]
  - Influenza [None]
  - Dysarthria [None]
